FAERS Safety Report 5601518-6 (Version None)
Quarter: 2008Q1

REPORT INFORMATION
  Report Type: 
  Country: None (occurrence: None)
  Receive Date: 20080124
  Receipt Date: 20070917
  Transmission Date: 20080703
  Serious: Yes (Other)
  Sender: FDA-Public Use
  Company Number: US-BAYER-200712418BCC

PATIENT
  Age: 32 Year
  Sex: Female
  Weight: 84 kg

DRUGS (1)
  1. ALEVE COLD AND SINUS [Suspect]
     Indication: NASAL CONGESTION
     Dosage: TOTAL DAILY DOSE: 220 MG  UNIT DOSE: 220 MG
     Route: 048
     Dates: start: 20070728, end: 20070729

REACTIONS (1)
  - HAEMATOCHEZIA [None]
